FAERS Safety Report 13027341 (Version 1)
Quarter: 2016Q4

REPORT INFORMATION
  Report Type: Spontaneous
  Country: US (occurrence: US)
  Receive Date: 20161214
  Receipt Date: 20161214
  Transmission Date: 20170207
  Serious: Yes (Other)
  Sender: FDA-Public Use
  Company Number: US-CELGENEUS-USA-2016123328

PATIENT
  Age: 78 Year
  Sex: Female

DRUGS (3)
  1. POMALYST [Suspect]
     Active Substance: POMALIDOMIDE
     Dosage: 2MG
     Route: 048
     Dates: start: 201510
  2. POMALYST [Suspect]
     Active Substance: POMALIDOMIDE
     Dosage: 1MG
     Route: 048
     Dates: start: 201606, end: 20161205
  3. POMALYST [Suspect]
     Active Substance: POMALIDOMIDE
     Indication: PLASMA CELL MYELOMA
     Dosage: 3MG
     Route: 048
     Dates: start: 201508

REACTIONS (1)
  - Drug ineffective [Unknown]

NARRATIVE: CASE EVENT DATE: 20161205
